FAERS Safety Report 9965379 (Version 1)
Quarter: 2014Q1

REPORT INFORMATION
  Report Type: Report from Study
  Country: US (occurrence: US)
  Receive Date: 20140305
  Receipt Date: 20140305
  Transmission Date: 20141002
  Serious: No
  Sender: FDA-Public Use
  Company Number: US-ABBVIE-13P-163-1126515-00

PATIENT
  Sex: Female

DRUGS (9)
  1. HUMIRA [Suspect]
     Indication: PSORIASIS
  2. DONEPEZIL [Concomitant]
     Indication: PRODUCT USED FOR UNKNOWN INDICATION
  3. HYDROXYZINE HCL [Concomitant]
     Indication: PRURITUS
  4. DOXEPIN [Concomitant]
     Indication: INSOMNIA
     Dosage: AT BEDTIME
  5. TRIAMTERENE [Concomitant]
     Indication: BLOOD PRESSURE
  6. METFORMIN [Concomitant]
     Indication: DIABETES MELLITUS
  7. CITALOPRAM [Concomitant]
     Indication: DEPRESSION
  8. PRAVASTATIN [Concomitant]
     Indication: BLOOD CHOLESTEROL
  9. POTASSIUM CLAVULANATE [Concomitant]
     Indication: VITAMIN SUPPLEMENTATION

REACTIONS (1)
  - Drug ineffective [Not Recovered/Not Resolved]
